FAERS Safety Report 6711217-5 (Version None)
Quarter: 2010Q2

REPORT INFORMATION
  Report Type: 
  Country: None (occurrence: None)
  Receive Date: 20100505
  Receipt Date: 20100427
  Transmission Date: 20101027
  Serious: Yes (Hospitalization)
  Sender: FDA-Public Use
  Company Number: JP-EISAI INC.-E3810-03752-SPO-JP

PATIENT
  Age: 75 Year
  Sex: Female

DRUGS (7)
  1. PARIET (RABEPRAZOLE) [Suspect]
     Indication: REFLUX OESOPHAGITIS
     Route: 048
     Dates: start: 20070921
  2. ZYPREXA [Suspect]
     Dosage: UNKNOWN
     Route: 065
  3. BONALON [Suspect]
     Route: 065
  4. PAXIL [Concomitant]
  5. MYSLEE [Concomitant]
  6. DOGMATYL [Concomitant]
  7. MEILAX [Concomitant]

REACTIONS (1)
  - INTERSTITIAL LUNG DISEASE [None]
